FAERS Safety Report 17000255 (Version 1)
Quarter: 2019Q4

REPORT INFORMATION
  Report Type: Spontaneous
  Country: AU (occurrence: AU)
  Receive Date: 20191106
  Receipt Date: 20191106
  Transmission Date: 20200122
  Serious: Yes (Other)
  Sender: FDA-Public Use
  Company Number: NVSC2019AU024625

PATIENT
  Age: 36 Year
  Sex: Female

DRUGS (1)
  1. COSENTYX [Suspect]
     Active Substance: SECUKINUMAB
     Indication: PRODUCT USED FOR UNKNOWN INDICATION
     Dosage: UNK
     Route: 065

REACTIONS (6)
  - Alpha tumour necrosis factor decreased [Unknown]
  - Macule [Unknown]
  - Skin hyperpigmentation [Unknown]
  - Interleukin level decreased [Unknown]
  - Acral lentiginous melanoma [Unknown]
  - Drug ineffective [Unknown]
